FAERS Safety Report 4264315-2 (Version None)
Quarter: 2004Q1

REPORT INFORMATION
  Report Type: 
  Country: None (occurrence: None)
  Receive Date: 20040106
  Receipt Date: 20040106
  Transmission Date: 20041129
  Serious: Yes (Life-Threatening, Hospitalization, Disabling)
  Sender: FDA-Public Use
  Company Number: None

PATIENT
  Age: 54 Year
  Sex: Female
  Weight: 104.3273 kg

DRUGS (2)
  1. PAXIL [Suspect]
     Dosage: 20 MGS 3 TIMES
     Dates: start: 19930101, end: 20021202
  2. PAROXETINE 20 MGS APOTEX [Suspect]
     Dosage: 20 MGS 3 TIMES
     Dates: start: 20021202, end: 20040105

REACTIONS (1)
  - DRUG WITHDRAWAL SYNDROME [None]
